FAERS Safety Report 6398568-1 (Version None)
Quarter: 2009Q4

REPORT INFORMATION
  Report Type: 
  Country: None (occurrence: None)
  Receive Date: 20091013
  Receipt Date: 20091013
  Transmission Date: 20100525
  Serious: Yes (Death, Other)
  Sender: FDA-Public Use
  Company Number: AR-PFIZER INC-2009243199

PATIENT
  Age: 70 Year

DRUGS (3)
  1. VFEND [Suspect]
     Indication: ASPERGILLOSIS
     Dosage: FREQUENCY: 2X/DAY, EVERY DAY;
     Route: 042
     Dates: start: 20090709
  2. NORADRENALINE [Concomitant]
     Dosage: UNK
     Route: 042
  3. DOPAMINE HCL [Concomitant]
     Dosage: UNK
     Route: 042

REACTIONS (2)
  - RENAL FAILURE [None]
  - SEPSIS [None]
